FAERS Safety Report 5085947-8 (Version None)
Quarter: 2006Q3

REPORT INFORMATION
  Report Type: 
  Country: None (occurrence: None)
  Receive Date: 20060822
  Receipt Date: 20060626
  Transmission Date: 20061208
  Serious: Yes (Other)
  Sender: FDA-Public Use
  Company Number: JP-MERCK-0607USA01532

PATIENT
  Age: 59 Year
  Sex: Male

DRUGS (5)
  1. COZAAR [Suspect]
     Indication: CARDIOPLEGIA
     Route: 048
     Dates: start: 20060527, end: 20060626
  2. CONIEL [Suspect]
     Indication: ARTERIOSPASM CORONARY
     Route: 048
     Dates: start: 20060614, end: 20060622
  3. 8-HOUR BAYER [Concomitant]
     Indication: ANGINA PECTORIS
     Route: 048
     Dates: start: 20060526
  4. SIGMART [Concomitant]
     Indication: ANGINA PECTORIS
     Route: 048
     Dates: start: 20060526
  5. WARFARIN [Concomitant]
     Indication: THROMBOSIS PROPHYLAXIS
     Route: 048
     Dates: start: 20060526

REACTIONS (1)
  - DIPLOPIA [None]
